FAERS Safety Report 8413748-9 (Version None)
Quarter: 2012Q2

REPORT INFORMATION
  Report Type: 
  Country: None (occurrence: None)
  Receive Date: 20120605
  Receipt Date: 20120531
  Transmission Date: 20120825
  Serious: Yes (Death, Other)
  Sender: FDA-Public Use
  Company Number: US-CELGENEUS-163-21880-12060225

PATIENT

DRUGS (2)
  1. REVLIMID [Suspect]
     Indication: LYMPHOMA
     Route: 048
  2. TEMSIROLIMUS [Suspect]
     Indication: LYMPHOMA
     Dosage: 25 MILLIGRAM
     Route: 041

REACTIONS (4)
  - DIARRHOEA [None]
  - HYPOKALAEMIA [None]
  - ORAL HERPES [None]
  - DISEASE PROGRESSION [None]
